FAERS Safety Report 7808764-1 (Version None)
Quarter: 2011Q4

REPORT INFORMATION
  Report Type: 
  Country: None (occurrence: None)
  Receive Date: 20111006
  Receipt Date: 20110922
  Transmission Date: 20120403
  Serious: Yes (Other)
  Sender: FDA-Public Use
  Company Number: 2008SP013365

PATIENT
  Age: 64 Year
  Sex: Female

DRUGS (6)
  1. REBETOL [Suspect]
     Indication: HEPATITIS C
     Dates: end: 20050915
  2. REBETOL [Suspect]
     Indication: HEPATITIS C
     Dates: start: 20050707
  3. REBETOL [Suspect]
     Indication: HEPATITIS C
     Dates: end: 20070608
  4. PEGASYS [Suspect]
     Indication: HEPATITIS C
     Dates: end: 20070608
  5. PEGASYS [Suspect]
     Indication: HEPATITIS C
     Dates: end: 20050915
  6. PEGASYS [Suspect]
     Indication: HEPATITIS C
     Dates: start: 20050707

REACTIONS (2)
  - DERMATITIS [None]
  - NEUTROPENIA [None]
